FAERS Safety Report 4817772-4 (Version None)
Quarter: 2005Q3

REPORT INFORMATION
  Report Type: 
  Country: None (occurrence: None)
  Receive Date: 20050929
  Receipt Date: 20050810
  Transmission Date: 20060218
  Serious: No
  Sender: FDA-Public Use
  Company Number: 05P-163-0308018-00

PATIENT
  Age: 42 Year
  Sex: Female
  Weight: 98.8842 kg

DRUGS (4)
  1. HUMIRA [Suspect]
     Indication: RHEUMATOID ARTHRITIS
     Dosage: 40 MG, 1 IN 2 WK, SUBCUTANEOUS
     Route: 058
     Dates: start: 20050414
  2. METHOTREXATE SODIUM [Concomitant]
  3. GLUCOPHAGE [Concomitant]
  4. TOCOPHEROL CONCENTRATE CAP [Concomitant]

REACTIONS (2)
  - BLOOD GLUCOSE INCREASED [None]
  - FATIGUE [None]
